FAERS Safety Report 8201151-6 (Version None)
Quarter: 2012Q1

REPORT INFORMATION
  Report Type: 
  Country: None (occurrence: None)
  Receive Date: 20120312
  Receipt Date: 20120302
  Transmission Date: 20120608
  Serious: Yes (Other)
  Sender: FDA-Public Use
  Company Number: US-JNJFOC-20120302585

PATIENT
  Sex: Female

DRUGS (2)
  1. RISPERDAL CONSTA [Suspect]
     Indication: PRODUCT USED FOR UNKNOWN INDICATION
     Route: 030
  2. RISPERDAL [Suspect]
     Indication: PRODUCT USED FOR UNKNOWN INDICATION
     Route: 048

REACTIONS (10)
  - PAIN [None]
  - GASTROOESOPHAGEAL REFLUX DISEASE [None]
  - ADVERSE DRUG REACTION [None]
  - DYSPNOEA EXERTIONAL [None]
  - NAUSEA [None]
  - CONSTIPATION [None]
  - BLOOD PRESSURE INCREASED [None]
  - BEDRIDDEN [None]
  - FAECAL INCONTINENCE [None]
  - ANXIETY [None]
